FAERS Safety Report 5931090-2 (Version None)
Quarter: 2008Q4

REPORT INFORMATION
  Report Type: 
  Country: None (occurrence: None)
  Receive Date: 20081023
  Receipt Date: 20081007
  Transmission Date: 20090506
  Serious: Yes (Hospitalization)
  Sender: FDA-Public Use
  Company Number: 8037642

PATIENT

DRUGS (4)
  1. PREDNISOLONE [Suspect]
     Indication: COLITIS ULCERATIVE
     Dosage: /D PO
     Route: 048
     Dates: start: 20050801
  2. PREDNISOLONE [Suspect]
     Indication: COLITIS ULCERATIVE
  3. METHYLPREDNISOLONE 16MG TAB [Concomitant]
  4. NEORAL [Concomitant]

REACTIONS (7)
  - DIARRHOEA [None]
  - DISSEMINATED CYTOMEGALOVIRAL INFECTION [None]
  - DRUG INEFFECTIVE [None]
  - DYSPNOEA [None]
  - PAIN IN EXTREMITY [None]
  - PYREXIA [None]
  - TRANSAMINASES INCREASED [None]
